FAERS Safety Report 5534095-9 (Version None)
Quarter: 2007Q4

REPORT INFORMATION
  Report Type: 
  Country: None (occurrence: None)
  Receive Date: 20071130
  Receipt Date: 20071116
  Transmission Date: 20080405
  Serious: Yes (Life-Threatening)
  Sender: FDA-Public Use
  Company Number: 2007S1011902

PATIENT
  Age: 95 Year
  Sex: Male

DRUGS (1)
  1. CIPROFLOXACIN [Suspect]
     Dosage: 500 MG; DAILY

REACTIONS (2)
  - RESTLESSNESS [None]
  - SUICIDAL BEHAVIOUR [None]
